FAERS Safety Report 20499899 (Version 1)
Quarter: 2022Q1

REPORT INFORMATION
  Report Type: Spontaneous
  Country: US (occurrence: US)
  Receive Date: 20220222
  Receipt Date: 20220222
  Transmission Date: 20220423
  Serious: No
  Sender: FDA-Public Use
  Company Number: US-UCBSA-2021029220

PATIENT
  Age: 70 Year
  Sex: Male

DRUGS (3)
  1. KEPPRA [Suspect]
     Active Substance: LEVETIRACETAM
     Indication: Affective disorder
     Dosage: 250 MILLIGRAM, 2X/DAY (BID)
  2. NORTRIPTYLINE [Concomitant]
     Active Substance: NORTRIPTYLINE
     Indication: Depression
     Dosage: 25 MILLIGRAM
  3. TRILEPTAL [Concomitant]
     Active Substance: OXCARBAZEPINE
     Indication: Affective disorder
     Dosage: 300 MILLIGRAM, 2X/DAY (BID)

REACTIONS (1)
  - Product use in unapproved indication [Unknown]
